FAERS Safety Report 7369242-X (Version None)
Quarter: 2011Q1

REPORT INFORMATION
  Report Type: 
  Country: None (occurrence: None)
  Receive Date: 20110323
  Receipt Date: 20110311
  Transmission Date: 20110831
  Serious: Yes (Hospitalization, Other)
  Sender: FDA-Public Use
  Company Number: CN-SANOFI-AVENTIS-2011SA014722

PATIENT
  Age: 69 Year
  Sex: Female
  Weight: 41 kg

DRUGS (2)
  1. LANTUS [Suspect]
     Indication: DIABETES MELLITUS
     Dates: start: 20110101
  2. THYROID THERAPY [Concomitant]

REACTIONS (4)
  - HYPOGLYCAEMIA [None]
  - DIZZINESS [None]
  - BLOOD GLUCOSE FLUCTUATION [None]
  - KETOACIDOSIS [None]
